FAERS Safety Report 25230920 (Version 1)
Quarter: 2025Q2

REPORT INFORMATION
  Report Type: Spontaneous
  Country: US (occurrence: US)
  Receive Date: 20250423
  Receipt Date: 20250423
  Transmission Date: 20250717
  Serious: Yes (Other)
  Sender: SANOFI AVENTIS
  Company Number: US-SA-2025SA117441

PATIENT
  Age: 64 Year
  Sex: Male

DRUGS (1)
  1. DUPILUMAB [Suspect]
     Active Substance: DUPILUMAB
     Indication: Dermatitis atopic

REACTIONS (8)
  - Sarcoid-like reaction [Unknown]
  - Hilar lymphadenopathy [Unknown]
  - Paratracheal lymphadenopathy [Unknown]
  - Pulmonary fibrosis [Unknown]
  - Granuloma [Unknown]
  - Pulmonary calcification [Unknown]
  - Lymphadenopathy mediastinal [Unknown]
  - Lymphadenopathy [Unknown]
